FAERS Safety Report 4711781-1 (Version None)
Quarter: 2005Q3

REPORT INFORMATION
  Report Type: 
  Country: None (occurrence: None)
  Receive Date: 20050711
  Receipt Date: 20050711
  Transmission Date: 20060218
  Serious: Yes (Other)
  Sender: FDA-Public Use
  Company Number: None

PATIENT
  Age: 47 Year
  Sex: Female
  Weight: 77.1115 kg

DRUGS (3)
  1. CLEAR CARE CIBA VISION [Suspect]
  2. KEFLEX [Concomitant]
  3. ADDERALL 30 [Concomitant]

REACTIONS (5)
  - FOREIGN BODY SENSATION IN EYES [None]
  - INSTILLATION SITE IRRITATION [None]
  - INSTILLATION SITE PAIN [None]
  - OCULAR HYPERAEMIA [None]
  - PHARMACEUTICAL PRODUCT COMPLAINT [None]
